FAERS Safety Report 20081394 (Version 1)
Quarter: 2021Q4

REPORT INFORMATION
  Report Type: Spontaneous
  Country: JP (occurrence: JP)
  Receive Date: 20211117
  Receipt Date: 20211117
  Transmission Date: 20220303
  Serious: Yes (Death)
  Sender: FDA-Public Use
  Company Number: JP-BAYER-2021A247751

PATIENT
  Age: 95 Year
  Sex: Female

DRUGS (3)
  1. ADEMPAS [Suspect]
     Active Substance: RIOCIGUAT
     Indication: Pulmonary hypertension
     Dosage: DAILY DOSE 3MG
     Route: 048
     Dates: end: 202109
  2. ELIQUIS [Concomitant]
     Active Substance: APIXABAN
     Dosage: UNK
  3. SAMSCA [Concomitant]
     Active Substance: TOLVAPTAN
     Dosage: UNK

REACTIONS (1)
  - Cardiac failure [Fatal]
